FAERS Safety Report 23091961 (Version 1)
Quarter: 2023Q4

REPORT INFORMATION
  Report Type: Spontaneous
  Country: DE (occurrence: DE)
  Receive Date: 20231021
  Receipt Date: 20231021
  Transmission Date: 20240110
  Serious: Yes (Other)
  Sender: FDA-Public Use
  Company Number: DE-EMBRYOTOX-202301043

PATIENT
  Sex: Male
  Weight: 0.65 kg

DRUGS (2)
  1. LAMOTRIGINE [Suspect]
     Active Substance: LAMOTRIGINE
     Indication: Epilepsy
     Dosage: 450 MILLIGRAM, ONCE A DAY,450 [MG/D ]/ 200-50-200 MG/D, AND COMPLETE PREGNANCY
     Route: 063
  2. LAMOTRIGINE [Suspect]
     Active Substance: LAMOTRIGINE
     Dosage: 450 MILLIGRAM, ONCE A DAY,450 [MG/D ]/ 200-50-200 MG/D, AND COMPLETE PREGNANCY
     Route: 064

REACTIONS (4)
  - Dysphagia [Recovering/Resolving]
  - Hypotonia neonatal [Recovering/Resolving]
  - Exposure via breast milk [Unknown]
  - Foetal exposure during pregnancy [Unknown]
